FAERS Safety Report 5420253-0 (Version None)
Quarter: 2007Q3

REPORT INFORMATION
  Report Type: 
  Country: None (occurrence: None)
  Receive Date: 20070815
  Receipt Date: 20070716
  Transmission Date: 20080115
  Serious: Yes (Hospitalization)
  Sender: FDA-Public Use
  Company Number: 6035775

PATIENT
  Age: 78 Year
  Sex: Female

DRUGS (4)
  1. ISOSORBIDE MONONITRATE [Suspect]
     Indication: SUICIDE ATTEMPT
     Dosage: 2 GM (2 GM, 1 IN 1 TOTAL)
  2. AMLODIPINE [Suspect]
     Indication: SUICIDE ATTEMPT
     Dosage: 430 MG (430 MG, 1 IN 1 TOTAL)
  3. BENAZEPRIL HCL [Suspect]
     Indication: SUICIDE ATTEMPT
     Dosage: 250 MG (250 MG, 1 IN 1 TOTAL)
  4. MIRTAZAPINE [Suspect]
     Indication: SUICIDE ATTEMPT
     Dosage: 600 MG (600 MG, 1 IN 1 TOTAL)

REACTIONS (8)
  - CARDIOVASCULAR INSUFFICIENCY [None]
  - DRUG TOXICITY [None]
  - INTESTINAL ISCHAEMIA [None]
  - MULTIPLE DRUG OVERDOSE INTENTIONAL [None]
  - NO THERAPEUTIC RESPONSE [None]
  - SHOCK [None]
  - SUICIDAL IDEATION [None]
  - VASODILATATION [None]
